FAERS Safety Report 15090217 (Version 1)
Quarter: 2018Q3

REPORT INFORMATION
  Report Type: Spontaneous
  Country: GB (occurrence: GB)
  Receive Date: 20180629
  Receipt Date: 20180629
  Transmission Date: 20181010
  Serious: Yes (Hospitalization)
  Sender: FDA-Public Use
  Company Number: GB-TEVA-2005-CZ-00384

PATIENT
  Age: 55 Year
  Sex: Male

DRUGS (10)
  1. METFORMIN TABLETS BP 850 MG [Suspect]
     Active Substance: METFORMIN HYDROCHLORIDE
     Dosage: 2550 MILLIGRAM DAILY;
     Route: 065
  2. ATORVASTATIN [Suspect]
     Active Substance: ATORVASTATIN
     Dosage: 10 MILLIGRAM DAILY;
     Route: 065
  3. BENDROFLUAZIDE 2.5MG TABLETS [Suspect]
     Active Substance: BENDROFLUMETHIAZIDE
     Dosage: 2.5 MILLIGRAM DAILY;
     Route: 065
  4. HYDRALAZINE HYDROCHLORIDE. [Suspect]
     Active Substance: HYDRALAZINE HYDROCHLORIDE
     Dosage: 100 MILLIGRAM DAILY;
     Route: 065
  5. RAMIPRIL 2,5 MG [Suspect]
     Active Substance: RAMIPRIL
     Dosage: 2.5 MILLIGRAM DAILY;
     Route: 065
  6. AMLODIPINE [Suspect]
     Active Substance: AMLODIPINE BESYLATE
     Dosage: 5 ? 10 MG QD
     Route: 065
  7. ISOSORBIDE MONONITRATE. [Suspect]
     Active Substance: ISOSORBIDE MONONITRATE
     Dosage: 60 MILLIGRAM DAILY;
     Route: 065
  8. METHYLDOPA TABLETS BP 250 MG [Suspect]
     Active Substance: METHYLDOPA
     Dosage: 750 MILLIGRAM DAILY;
     Route: 065
  9. PIOGLITAZONE. [Suspect]
     Active Substance: PIOGLITAZONE
     Dosage: 15 MILLIGRAM DAILY;
     Route: 065
  10. ACETYLSALICYLIC ACID [Suspect]
     Active Substance: ASPIRIN
     Dosage: 75 MILLIGRAM DAILY;
     Route: 065

REACTIONS (10)
  - Hemianopia homonymous [Recovering/Resolving]
  - Somnolence [Recovering/Resolving]
  - Atrial fibrillation [Not Recovered/Not Resolved]
  - Haemorrhagic stroke [Recovering/Resolving]
  - Dysarthria [Recovering/Resolving]
  - Glucose urine present [Unknown]
  - Proteinuria [Unknown]
  - Hypertension [Not Recovered/Not Resolved]
  - Ventricular hypertrophy [Not Recovered/Not Resolved]
  - Cerebral haematoma [Recovering/Resolving]
